FAERS Safety Report 9012938 (Version 1)
Quarter: 2013Q1

REPORT INFORMATION
  Report Type: Spontaneous
  Country: US (occurrence: US)
  Receive Date: 20130114
  Receipt Date: 20130114
  Transmission Date: 20140127
  Serious: Yes (Other)
  Sender: FDA-Public Use
  Company Number: US-GLAXOSMITHKLINE-A1007413A

PATIENT
  Age: 66 Year
  Sex: Female

DRUGS (27)
  1. ADVAIR [Suspect]
     Indication: CHRONIC OBSTRUCTIVE PULMONARY DISEASE
     Dosage: 1PUFF TWICE PER DAY
     Route: 055
     Dates: start: 2004
  2. OMEGA FISH OIL [Concomitant]
  3. FLUTICASONE PROPIONATE [Concomitant]
  4. ZINC MAGNESIUM [Concomitant]
  5. KLOR-CON [Concomitant]
  6. KOREAN GINSENG [Concomitant]
  7. SENIOR MULTIVITAMIN [Concomitant]
  8. VITAMIN C [Concomitant]
  9. METFORMIN [Concomitant]
  10. NAPROXEN [Concomitant]
  11. TRAZODONE [Concomitant]
  12. ASPIRIN [Concomitant]
  13. VYTORIN [Concomitant]
  14. B VITAMIN [Concomitant]
  15. VITAMIN D3 [Concomitant]
  16. SINGULAIR [Concomitant]
  17. VITAMIN D [Concomitant]
  18. FUROSEMIDE [Concomitant]
  19. LEVOTHROID [Concomitant]
  20. HYDROCHLOROTHIAZIDE + LOSARTAN [Concomitant]
  21. MEPRON [Concomitant]
  22. ALBUTEROL [Concomitant]
  23. NOVOLOG INSULIN [Concomitant]
  24. INSULIN LANTUS [Concomitant]
  25. LORTAB [Concomitant]
  26. METOCLOPRAMIDE [Concomitant]
  27. NITROSTAT [Concomitant]

REACTIONS (4)
  - Lobar pneumonia [Recovered/Resolved]
  - Pyrexia [Recovered/Resolved]
  - Cough [Recovered/Resolved]
  - Asthenia [Recovered/Resolved]
